FAERS Safety Report 25623238 (Version 3)
Quarter: 2025Q3

REPORT INFORMATION
  Report Type: Spontaneous
  Country: US (occurrence: US)
  Receive Date: 20250730
  Receipt Date: 20250814
  Transmission Date: 20251021
  Serious: No
  Sender: BRISTOL-MYERS SQUIBB COMPANY
  Company Number: US-BRISTOL-MYERS SQUIBB COMPANY-2025-106380

PATIENT
  Age: 85 Year
  Sex: Male
  Weight: 77.11 kg

DRUGS (1)
  1. POMALYST [Suspect]
     Active Substance: POMALIDOMIDE
     Indication: Plasma cell myeloma
     Dosage: 14 DAYS ON AND THEN 7 DAYS OFF
     Route: 048

REACTIONS (3)
  - COVID-19 [Recovered/Resolved]
  - Tooth disorder [Unknown]
  - Tooth abscess [Recovered/Resolved]
